FAERS Safety Report 15154037 (Version 5)
Quarter: 2020Q1

REPORT INFORMATION
  Report Type: Report from Study
  Country: US (occurrence: US)
  Receive Date: 20180717
  Receipt Date: 20200106
  Transmission Date: 20200409
  Serious: Yes (Other)
  Sender: FDA-Public Use
  Company Number: US-ROCHE-2147695

PATIENT
  Age: 59 Year
  Sex: Female
  Weight: 54.48 kg

DRUGS (2)
  1. OCREVUS [Suspect]
     Active Substance: OCRELIZUMAB
     Indication: RELAPSING MULTIPLE SCLEROSIS
     Route: 065
     Dates: start: 201805
  2. OCREVUS [Suspect]
     Active Substance: OCRELIZUMAB
     Route: 065

REACTIONS (12)
  - Nasopharyngitis [Unknown]
  - Cough [Not Recovered/Not Resolved]
  - Stomatitis [Unknown]
  - Vision blurred [Not Recovered/Not Resolved]
  - Pyrexia [Recovered/Resolved]
  - Bronchitis [Recovering/Resolving]
  - Balance disorder [Not Recovered/Not Resolved]
  - Vertigo [Recovering/Resolving]
  - Malaise [Unknown]
  - Gait disturbance [Unknown]
  - Herpes zoster [Not Recovered/Not Resolved]
  - Sinus disorder [Unknown]

NARRATIVE: CASE EVENT DATE: 201805
